FAERS Safety Report 8336773 (Version 6)
Quarter: 2013Q1

REPORT INFORMATION
  Report Type: Spontaneous
  Country: US (occurrence: US)
  Receive Date: 20120113
  Receipt Date: 20130109
  Transmission Date: 20140127
  Serious: Yes (Death)
  Sender: FDA-Public Use
  Company Number: US-MYLANLABS-2012S1000501

PATIENT
  Age: 50 Year
  Sex: Male
  Weight: 107.96 kg

DRUGS (13)
  1. FENTANYL TRANSDERMAL SYSTEM [Suspect]
     Indication: PAIN
     Route: 062
     Dates: start: 20081223, end: 20090101
  2. CLONAZEPAM [Concomitant]
  3. GABAPENTIN [Concomitant]
  4. CYMBALTA [Concomitant]
  5. VIAGRA [Concomitant]
  6. OXYCODONE / ACETAMINOPHEN [Concomitant]
     Indication: PAIN
     Route: 048
  7. CYCLOBENZAPRINE [Concomitant]
     Route: 048
  8. VENLAFAXINE [Concomitant]
  9. DOXYCYCLINE [Concomitant]
  10. TRAMADOL [Concomitant]
  11. HYDROXYZINE [Concomitant]
  12. NORTRIPTYLINE [Concomitant]
  13. KETOROLAC [Concomitant]

REACTIONS (2)
  - Toxicity to various agents [Fatal]
  - Overdose [Fatal]
